FAERS Safety Report 7271985-3 (Version None)
Quarter: 2011Q1

REPORT INFORMATION
  Report Type: 
  Country: None (occurrence: None)
  Receive Date: 20110127
  Receipt Date: 20110119
  Transmission Date: 20110831
  Serious: Yes (Hospitalization)
  Sender: FDA-Public Use
  Company Number: FR-GDP-10408942

PATIENT
  Sex: Female

DRUGS (3)
  1. ROZEX (METRONIDAZOLE) [Suspect]
     Indication: ROSACEA
     Dosage: (TOPICAL)
     Route: 061
     Dates: start: 20100913, end: 20100929
  2. TRIPHASIL-21 [Concomitant]
  3. TOLEXINE (DOXYCYCLINE HYDROCHLORIDE) 100 MG [Suspect]
     Indication: ROSACEA
     Dosage: (100 MG QD ORAL)
     Route: 048
     Dates: start: 20100913, end: 20100926

REACTIONS (15)
  - RASH MACULAR [None]
  - INFECTION [None]
  - WHITE BLOOD CELL COUNT INCREASED [None]
  - VARICELLA VIRUS TEST POSITIVE [None]
  - RASH GENERALISED [None]
  - C-REACTIVE PROTEIN INCREASED [None]
  - ANTINUCLEAR ANTIBODY POSITIVE [None]
  - IRIDOCYCLITIS [None]
  - PRURITUS [None]
  - ANTI-SS-A ANTIBODY POSITIVE [None]
  - HEADACHE [None]
  - CONJUNCTIVITIS [None]
  - NEUTROPHIL COUNT INCREASED [None]
  - PYREXIA [None]
  - TOXIC SKIN ERUPTION [None]
